FAERS Safety Report 22800585 (Version 2)
Quarter: 2023Q4

REPORT INFORMATION
  Report Type: Spontaneous
  Country: US (occurrence: US)
  Receive Date: 20230808
  Receipt Date: 20231109
  Transmission Date: 20240110
  Serious: No
  Sender: FDA-Public Use
  Company Number: US-SA-SAC20230804001179

PATIENT
  Age: 39 Year
  Sex: Female

DRUGS (2)
  1. DUPIXENT [Suspect]
     Active Substance: DUPILUMAB
     Indication: Eosinophilic oesophagitis
     Dosage: 300 MG, QW
     Route: 058
  2. DUPIXENT [Suspect]
     Active Substance: DUPILUMAB
     Dosage: 300 MG, Q10D
     Route: 058

REACTIONS (8)
  - Injection site urticaria [Unknown]
  - Sleep apnoea syndrome [Unknown]
  - Oesophageal discomfort [Unknown]
  - Erythema [Unknown]
  - Pruritus [Unknown]
  - Injection site pruritus [Unknown]
  - Injection site swelling [Unknown]
  - Intentional product misuse [Unknown]
